FAERS Safety Report 8278241-5 (Version None)
Quarter: 2012Q2

REPORT INFORMATION
  Report Type: 
  Country: None (occurrence: None)
  Receive Date: 20120412
  Receipt Date: 20110614
  Transmission Date: 20120825
  Serious: No
  Sender: FDA-Public Use
  Company Number: US-ASTRAZENECA-2011SE36293

PATIENT
  Age: 71 Year
  Sex: Female
  Weight: 71.7 kg

DRUGS (5)
  1. LOVASTATIN [Concomitant]
     Indication: HYPERCHOLESTEROLAEMIA
  2. SEROQUEL [Suspect]
     Indication: DEPRESSION
     Route: 048
     Dates: start: 20090101
  3. VITAMIN D [Concomitant]
  4. LISINOPRIL [Concomitant]
     Indication: HYPERTENSION
  5. NEXIUM [Suspect]
     Indication: GASTROOESOPHAGEAL REFLUX DISEASE
     Route: 048
     Dates: start: 20110608

REACTIONS (3)
  - FRUSTRATION [None]
  - DYSPEPSIA [None]
  - REGURGITATION [None]
